APPROVED DRUG PRODUCT: AQUAPHYLLIN
Active Ingredient: THEOPHYLLINE
Strength: 80MG/15ML
Dosage Form/Route: SYRUP;ORAL
Application: A087917 | Product #001
Applicant: FERNDALE LABORATORIES INC
Approved: Jan 18, 1983 | RLD: No | RS: No | Type: DISCN